FAERS Safety Report 15238426 (Version 1)
Quarter: 2018Q3

REPORT INFORMATION
  Report Type: Report from Study
  Country: None (occurrence: US)
  Receive Date: 20180803
  Receipt Date: 20180803
  Transmission Date: 20181010
  Serious: Yes (Other)
  Sender: FDA-Public Use
  Company Number: US-ABBVIE-18K-163-2390537-00

PATIENT
  Age: 58 Year
  Sex: Male
  Weight: 86.26 kg

DRUGS (11)
  1. OMEPRAZOLE. [Concomitant]
     Active Substance: OMEPRAZOLE
     Indication: PROPHYLAXIS
  2. PIROXICAM. [Concomitant]
     Active Substance: PIROXICAM
     Indication: PSORIATIC ARTHROPATHY
  3. ASPIRIN. [Concomitant]
     Active Substance: ASPIRIN
     Indication: PROPHYLAXIS
  4. GLUCOSAMINE [Concomitant]
     Active Substance: GLUCOSAMINE
     Indication: ARTHRALGIA
  5. METHOTREXATE. [Suspect]
     Active Substance: METHOTREXATE
     Indication: PSORIATIC ARTHROPATHY
     Dosage: DOSE DECREASE
     Route: 048
  6. HUMIRA [Suspect]
     Active Substance: ADALIMUMAB
     Indication: PSORIATIC ARTHROPATHY
     Route: 058
     Dates: start: 2010
  7. CALCIUM CARBONATE. [Concomitant]
     Active Substance: CALCIUM CARBONATE
     Indication: BLOOD CALCIUM DECREASED
  8. TURMERIC [Concomitant]
     Active Substance: HERBALS\TURMERIC
     Indication: SUPPLEMENTATION THERAPY
  9. ALLOPURINOL. [Concomitant]
     Active Substance: ALLOPURINOL
     Indication: PROPHYLAXIS
  10. VITAMIN B6 [Concomitant]
     Active Substance: PYRIDOXINE HYDROCHLORIDE
     Indication: RENAL LITHIASIS PROPHYLAXIS
  11. FOLIC ACID. [Concomitant]
     Active Substance: FOLIC ACID
     Indication: VITAMIN SUPPLEMENTATION

REACTIONS (16)
  - Body height decreased [Not Recovered/Not Resolved]
  - Spinal deformity [Not Recovered/Not Resolved]
  - Irritability [Unknown]
  - Anger [Unknown]
  - Psoriatic arthropathy [Recovering/Resolving]
  - Hyperparathyroidism [Recovering/Resolving]
  - Bone density decreased [Not Recovered/Not Resolved]
  - Fatigue [Recovering/Resolving]
  - Nephrolithiasis [Recovered/Resolved]
  - Post procedural complication [Unknown]
  - Parathyroid gland enlargement [Recovering/Resolving]
  - Memory impairment [Unknown]
  - Blood calcium decreased [Unknown]
  - Psoriasis [Unknown]
  - Blood calcium increased [Recovering/Resolving]
  - Trigger finger [Unknown]

NARRATIVE: CASE EVENT DATE: 201701
